FAERS Safety Report 5251141-0 (Version None)
Quarter: 2007Q1

REPORT INFORMATION
  Report Type: 
  Country: None (occurrence: None)
  Receive Date: 20070228
  Receipt Date: 20061027
  Transmission Date: 20070707
  Serious: No
  Sender: FDA-Public Use
  Company Number: US-GLAXOSMITHKLINE-A0618834A

PATIENT
  Age: 24 Year
  Sex: Female
  Weight: 49.1 kg

DRUGS (1)
  1. LAMICTAL [Suspect]
     Indication: EPILEPSY
     Dosage: 425MG PER DAY
     Route: 048
     Dates: start: 20000101

REACTIONS (1)
  - FALSE POSITIVE LABORATORY RESULT [None]
